FAERS Safety Report 7682666-6 (Version None)
Quarter: 2011Q3

REPORT INFORMATION
  Report Type: 
  Country: None (occurrence: None)
  Receive Date: 20110815
  Receipt Date: 20110801
  Transmission Date: 20111222
  Serious: Yes (Hospitalization)
  Sender: FDA-Public Use
  Company Number: US-JNJFOC-20060203173

PATIENT
  Sex: Female
  Weight: 42.1 kg

DRUGS (3)
  1. INFLIXIMAB [Suspect]
     Indication: COLITIS ULCERATIVE
     Dosage: TOAL 10 DOSES
     Route: 042
     Dates: start: 20050429
  2. INFLIXIMAB [Suspect]
     Route: 042
     Dates: start: 20040128, end: 20050310
  3. AZATHIOPRINE [Concomitant]
     Indication: PRODUCT USED FOR UNKNOWN INDICATION

REACTIONS (1)
  - COLITIS ULCERATIVE [None]
